FAERS Safety Report 17216517 (Version 1)
Quarter: 2019Q4

REPORT INFORMATION
  Report Type: Spontaneous
  Country: DE (occurrence: DE)
  Receive Date: 20191230
  Receipt Date: 20191230
  Transmission Date: 20200122
  Serious: Yes (Other)
  Sender: FDA-Public Use
  Company Number: DE-AUROBINDO-AUR-APL-2019-108227

PATIENT
  Age: 1 Day
  Sex: Male
  Weight: 3.66 kg

DRUGS (2)
  1. L-THYROXIN [Concomitant]
     Active Substance: LEVOTHYROXINE SODIUM
     Indication: HYPOTHYROIDISM
     Dosage: 75 MICROGRAM, ONCE A DAY 75 [?G/D ]
     Route: 064
     Dates: start: 20180918
  2. VENLAFAXINE [Suspect]
     Active Substance: VENLAFAXINE HYDROCHLORIDE
     Indication: DEPRESSION
     Dosage: 75 MILLIGRAM, ONCE A DAY (75 [MG/D ])
     Route: 064
     Dates: start: 20180918, end: 20190605

REACTIONS (5)
  - Oxygen saturation decreased [Recovered/Resolved]
  - Myoclonus [Recovered/Resolved]
  - Foetal exposure during pregnancy [Unknown]
  - Atrial septal defect [Unknown]
  - Respiratory disorder neonatal [Recovered/Resolved]

NARRATIVE: CASE EVENT DATE: 20190605
